FAERS Safety Report 4640744-X (Version None)
Quarter: 2005Q2

REPORT INFORMATION
  Report Type: 
  Country: None (occurrence: None)
  Receive Date: 20050419
  Receipt Date: 20050401
  Transmission Date: 20051028
  Serious: No
  Sender: FDA-Public Use
  Company Number: 10783

PATIENT
  Age: 40 Year
  Sex: Female

DRUGS (4)
  1. PACLITAXEL [Suspect]
     Indication: BREAST CANCER
     Dosage: 160 MG WEEKLY IV
     Route: 042
  2. TRASTUZUMAB [Suspect]
     Indication: BREAST CANCER
     Dosage: 225 MG WEEKLY/110 MG WEEKLY
  3. TRASTUZUMAB [Suspect]
     Indication: METASTASES TO LUNG
     Dosage: 225 MG WEEKLY/110 MG WEEKLY
  4. DOCETAXEL [Concomitant]

REACTIONS (10)
  - DRUG INTERACTION [None]
  - EPIDERMAL NECROSIS [None]
  - ONYCHOLYSIS [None]
  - PHOTOSENSITIVITY REACTION [None]
  - PORPHYRIN METABOLISM DISORDER [None]
  - RASH MACULO-PAPULAR [None]
  - SKIN DEGENERATIVE DISORDER [None]
  - SKIN HYPERPIGMENTATION [None]
  - SKIN OEDEMA [None]
  - THERAPY NON-RESPONDER [None]
